FAERS Safety Report 12370546 (Version 2)
Quarter: 2016Q2

REPORT INFORMATION
  Report Type: Report from Study
  Country: DE (occurrence: DE)
  Receive Date: 20160516
  Receipt Date: 20160606
  Transmission Date: 20160815
  Serious: Yes (Hospitalization)
  Sender: FDA-Public Use
  Company Number: GXKR2016DE002293

PATIENT
  Age: 8 Year
  Sex: Male

DRUGS (1)
  1. SOMATROPIN [Suspect]
     Active Substance: SOMATROPIN
     Indication: MICROSOMIA
     Dosage: 0.6 OR 0.7 MG/DAY, ALTERNATING WEEKLY
     Dates: start: 20131007

REACTIONS (1)
  - Hair follicle tumour benign [Recovered/Resolved]

NARRATIVE: CASE EVENT DATE: 20150630
